FAERS Safety Report 8927347 (Version 1)
Quarter: 2012Q4

REPORT INFORMATION
  Report Type: 
  Country: ZA (occurrence: ZA)
  Receive Date: 20121127
  Receipt Date: 20121127
  Transmission Date: 20130627
  Serious: Yes (Other)
  Sender: FDA-Public Use
  Company Number: ZA-JNJFOC-20121112062

PATIENT
  Sex: Male

DRUGS (1)
  1. NICORETTE 2 MG GUM [Suspect]
     Indication: PRODUCT USED FOR UNKNOWN INDICATION
     Dosage: 105 gums in 5 days or less
     Route: 002
     Dates: start: 2005

REACTIONS (2)
  - Intentional drug misuse [Unknown]
  - Overdose [Unknown]
